FAERS Safety Report 20670811 (Version 2)
Quarter: 2022Q2

REPORT INFORMATION
  Report Type: Spontaneous
  Country: US (occurrence: US)
  Receive Date: 20220404
  Receipt Date: 20220523
  Transmission Date: 20220721
  Serious: No
  Sender: FDA-Public Use
  Company Number: US-ALXN-A202204088

PATIENT
  Sex: Male

DRUGS (1)
  1. SOLIRIS [Suspect]
     Active Substance: ECULIZUMAB
     Indication: Product used for unknown indication
     Dosage: UNK
     Route: 065

REACTIONS (7)
  - Irritability [Unknown]
  - Discomfort [Unknown]
  - Laboratory test abnormal [Unknown]
  - Fibrin D dimer increased [Unknown]
  - Coagulation test abnormal [Unknown]
  - Sleep disorder [Unknown]
  - Pyrexia [Unknown]
